FAERS Safety Report 12849909 (Version 1)
Quarter: 2016Q4

REPORT INFORMATION
  Report Type: Spontaneous
  Country: US (occurrence: US)
  Receive Date: 20161014
  Receipt Date: 20161014
  Transmission Date: 20170207
  Serious: No
  Sender: FDA-Public Use
  Company Number: US-PFIZER INC-2016480321

PATIENT
  Age: 47 Year
  Sex: Male
  Weight: 102.6 kg

DRUGS (1)
  1. VIAGRA [Suspect]
     Active Substance: SILDENAFIL CITRATE
     Indication: ERECTION INCREASED
     Dosage: 50 MG, 1X/DAY
     Route: 048
     Dates: start: 20160707

REACTIONS (4)
  - Semen volume increased [Unknown]
  - Ejaculation disorder [Unknown]
  - Erection increased [Unknown]
  - Penile swelling [Unknown]
